FAERS Safety Report 23857840 (Version 2)
Quarter: 2024Q2

REPORT INFORMATION
  Report Type: Spontaneous
  Country: JP (occurrence: JP)
  Receive Date: 20240515
  Receipt Date: 20240516
  Transmission Date: 20240716
  Serious: Yes (Other)
  Sender: FDA-Public Use
  Company Number: JP-MLMSERVICE-20240503-PI047734-00218-3

PATIENT
  Age: 59 Year
  Sex: Female

DRUGS (25)
  1. METHOTREXATE SODIUM [Suspect]
     Active Substance: METHOTREXATE SODIUM
     Indication: Metastases to peritoneum
     Dosage: 15 MG, WEEKLY
     Route: 037
  2. METHOTREXATE SODIUM [Suspect]
     Active Substance: METHOTREXATE SODIUM
     Indication: Metastases to meninges
  3. METHOTREXATE SODIUM [Suspect]
     Active Substance: METHOTREXATE SODIUM
     Indication: HER2 positive breast cancer
  4. METHOTREXATE SODIUM [Suspect]
     Active Substance: METHOTREXATE SODIUM
     Indication: Metastases to the mediastinum
  5. METHOTREXATE SODIUM [Suspect]
     Active Substance: METHOTREXATE SODIUM
     Indication: Metastases to lymph nodes
  6. METHOTREXATE SODIUM [Suspect]
     Active Substance: METHOTREXATE SODIUM
     Indication: Metastases to lymph nodes
  7. TRASTUZUMAB [Concomitant]
     Active Substance: TRASTUZUMAB
     Indication: Metastases to lymph nodes
     Dosage: 60 MG, WEEKLY
     Route: 037
  8. TRASTUZUMAB [Concomitant]
     Active Substance: TRASTUZUMAB
     Indication: Metastases to meninges
  9. TRASTUZUMAB [Concomitant]
     Active Substance: TRASTUZUMAB
     Indication: Metastases to the mediastinum
  10. TRASTUZUMAB [Concomitant]
     Active Substance: TRASTUZUMAB
     Indication: Metastases to peritoneum
  11. TRASTUZUMAB [Concomitant]
     Active Substance: TRASTUZUMAB
     Indication: Metastases to lymph nodes
  12. TRASTUZUMAB [Concomitant]
     Active Substance: TRASTUZUMAB
     Indication: HER2 positive breast cancer
  13. PERTUZUMAB [Concomitant]
     Active Substance: PERTUZUMAB
     Indication: Metastases to lymph nodes
     Dosage: UNK
  14. PERTUZUMAB [Concomitant]
     Active Substance: PERTUZUMAB
     Indication: Metastases to peritoneum
  15. PERTUZUMAB [Concomitant]
     Active Substance: PERTUZUMAB
     Indication: Metastases to lymph nodes
  16. PERTUZUMAB [Concomitant]
     Active Substance: PERTUZUMAB
     Indication: Metastases to meninges
  17. PERTUZUMAB [Concomitant]
     Active Substance: PERTUZUMAB
     Indication: Metastases to the mediastinum
  18. PERTUZUMAB [Concomitant]
     Active Substance: PERTUZUMAB
     Indication: HER2 positive breast cancer
  19. PACLITAXEL [Concomitant]
     Active Substance: PACLITAXEL
     Indication: Metastases to peritoneum
     Dosage: UNK
  20. PACLITAXEL [Concomitant]
     Active Substance: PACLITAXEL
     Indication: Metastases to lymph nodes
  21. PACLITAXEL [Concomitant]
     Active Substance: PACLITAXEL
     Indication: Metastases to the mediastinum
  22. PACLITAXEL [Concomitant]
     Active Substance: PACLITAXEL
     Indication: HER2 positive breast cancer
  23. PACLITAXEL [Concomitant]
     Active Substance: PACLITAXEL
     Indication: Malignant neoplasm of unknown primary site
  24. PACLITAXEL [Concomitant]
     Active Substance: PACLITAXEL
     Indication: Metastases to lymph nodes
  25. PACLITAXEL [Concomitant]
     Active Substance: PACLITAXEL
     Indication: Metastases to meninges

REACTIONS (1)
  - Leukoencephalopathy [Unknown]
